FAERS Safety Report 6349683-X (Version None)
Quarter: 2009Q3

REPORT INFORMATION
  Report Type: 
  Country: None (occurrence: None)
  Receive Date: 20090911
  Receipt Date: 20090902
  Transmission Date: 20100115
  Serious: Yes (Disabling)
  Sender: FDA-Public Use
  Company Number: US-ELI_LILLY_AND_COMPANY-US200909000581

PATIENT
  Sex: Female

DRUGS (2)
  1. EVISTA [Suspect]
     Dosage: UNK, UNKNOWN
     Route: 065
     Dates: start: 20090801, end: 20090801
  2. ESTROGEN NOS [Interacting]

REACTIONS (9)
  - BALANCE DISORDER [None]
  - CONTUSION [None]
  - DRUG INTERACTION [None]
  - FALL [None]
  - MALAISE [None]
  - NEURALGIA [None]
  - OEDEMA PERIPHERAL [None]
  - URINARY TRACT INFECTION [None]
  - WALKING DISABILITY [None]
